FAERS Safety Report 21720295 (Version 1)
Quarter: 2022Q4

REPORT INFORMATION
  Report Type: Spontaneous
  Country: US (occurrence: US)
  Receive Date: 20221213
  Receipt Date: 20221213
  Transmission Date: 20230113
  Serious: Yes (Hospitalization, Other)
  Sender: FDA-Public Use
  Company Number: US-STRIDES ARCOLAB LIMITED-2022SP007822

PATIENT
  Age: 33 Year
  Sex: Female

DRUGS (11)
  1. PREDNISOLONE [Suspect]
     Active Substance: PREDNISOLONE
     Indication: Systemic lupus erythematosus
     Dosage: UNK
     Route: 065
     Dates: start: 2009
  2. PREDNISOLONE [Suspect]
     Active Substance: PREDNISOLONE
     Indication: Large granular lymphocytosis
     Dosage: 20 MILLIGRAM
     Route: 065
     Dates: start: 2015
  3. PREDNISOLONE [Suspect]
     Active Substance: PREDNISOLONE
     Dosage: UNK, (DOSE INCREASED)
     Route: 065
     Dates: start: 2015
  4. PREDNISOLONE [Suspect]
     Active Substance: PREDNISOLONE
     Dosage: UNK, (DOSE TAPERED)
     Route: 065
  5. METHOTREXATE [Suspect]
     Active Substance: METHOTREXATE
     Indication: Systemic lupus erythematosus
     Dosage: UNK
     Route: 065
     Dates: start: 2009
  6. METHOTREXATE [Suspect]
     Active Substance: METHOTREXATE
     Indication: Large granular lymphocytosis
     Dosage: 15 MILLIGRAM WEEKLY
     Route: 048
     Dates: start: 2015
  7. CYCLOPHOSPHAMIDE [Suspect]
     Active Substance: CYCLOPHOSPHAMIDE
     Indication: Large granular lymphocytosis
     Dosage: 100 MILLIGRAM PER DAY
     Route: 048
     Dates: start: 2015, end: 2015
  8. CYCLOSPORINE [Suspect]
     Active Substance: CYCLOSPORINE
     Indication: Large granular lymphocytosis
     Dosage: 100 MILLIGRAM, BID
     Route: 065
     Dates: start: 2016
  9. PENTOSTATIN [Suspect]
     Active Substance: PENTOSTATIN
     Indication: Large granular lymphocytosis
     Dosage: 6.2 MILLIGRAM, CYCLICAL (2 CYCLES)
     Route: 042
     Dates: start: 2016
  10. BELIMUMAB [Suspect]
     Active Substance: BELIMUMAB
     Indication: Systemic lupus erythematosus
     Dosage: UNK
     Route: 065
  11. ETANERCEPT [Suspect]
     Active Substance: ETANERCEPT
     Indication: Systemic lupus erythematosus
     Dosage: UNK
     Route: 065
     Dates: start: 2009

REACTIONS (5)
  - Pathological fracture [Unknown]
  - Pneumonia [Unknown]
  - Drug ineffective [Unknown]
  - Infection [Unknown]
  - Off label use [Unknown]

NARRATIVE: CASE EVENT DATE: 20150101
